FAERS Safety Report 9643503 (Version 5)
Quarter: 2014Q2

REPORT INFORMATION
  Report Type: Spontaneous
  Country: JP (occurrence: JP)
  Receive Date: 20131024
  Receipt Date: 20140505
  Transmission Date: 20141212
  Serious: Yes (Hospitalization)
  Sender: FDA-Public Use
  Company Number: JP-BAYER-2013-126494

PATIENT
  Age: 69 Year
  Sex: Male
  Weight: 60 kg

DRUGS (7)
  1. NEXAVAR [Suspect]
     Indication: HEPATOCELLULAR CARCINOMA
     Dosage: DAILY DOSE 400 MG
     Route: 048
     Dates: start: 20131011, end: 20131014
  2. NEXAVAR [Suspect]
     Indication: HEPATOCELLULAR CARCINOMA
     Dosage: 200 MG, QD
     Route: 048
     Dates: start: 20140108, end: 20140112
  3. AMLODIN [Concomitant]
     Dosage: DAILY DOSE 5 MG
     Route: 048
  4. NEXIUM [Concomitant]
     Dosage: DAILY DOSE 20 MG
     Route: 048
  5. URSO [Concomitant]
     Dosage: DAILY DOSE 900 MG
     Route: 048
  6. MYSLEE [Concomitant]
     Dosage: DAILY DOSE 10 MG
     Route: 048
  7. LIVACT [Concomitant]
     Dosage: DAILY DOSE 12.45 G
     Route: 048

REACTIONS (2)
  - Hepatic encephalopathy [Recovering/Resolving]
  - Hepatic encephalopathy [Recovering/Resolving]
